FAERS Safety Report 18270691 (Version 1)
Quarter: 2020Q3

REPORT INFORMATION
  Report Type: Spontaneous
  Country: FR (occurrence: FR)
  Receive Date: 20200916
  Receipt Date: 20200916
  Transmission Date: 20201103
  Serious: Yes (Other)
  Sender: FDA-Public Use
  Company Number: FR-TEVA-2020-FR-1826686

PATIENT
  Age: 60 Year
  Sex: Male
  Weight: 93 kg

DRUGS (12)
  1. EMEND 80 MG, GELULE [Suspect]
     Active Substance: APREPITANT
     Indication: CHEMOTHERAPY SIDE EFFECT PROPHYLAXIS
     Dosage: 160 MG
     Route: 048
     Dates: start: 20200519
  2. ETOPOSIDE. [Suspect]
     Active Substance: ETOPOSIDE
     Indication: SMALL CELL LUNG CANCER
     Dosage: 630 MG
     Route: 041
     Dates: start: 20200519
  3. METHYLPREDNISOLONE MYLAN [Suspect]
     Active Substance: METHYLPREDNISOLONE
     Indication: CHEMOTHERAPY SIDE EFFECT PROPHYLAXIS
     Dosage: 60 MG
     Route: 041
     Dates: start: 20200519
  4. TECENTRIQ [Suspect]
     Active Substance: ATEZOLIZUMAB
     Indication: SMALL CELL LUNG CANCER
     Dosage: 1200 MG
     Route: 041
     Dates: start: 20200519
  5. ONDANSETRON ACCORD [Suspect]
     Active Substance: ONDANSETRON
     Indication: CHEMOTHERAPY SIDE EFFECT PROPHYLAXIS
     Dosage: 16 MG
     Route: 041
     Dates: start: 20200519
  6. LANSOPRAZOLE MYLAN 15 MG, GELULE GASTRO?RESISTANTE [Concomitant]
  7. EMEND [Suspect]
     Active Substance: APREPITANT
     Indication: CHEMOTHERAPY SIDE EFFECT PROPHYLAXIS
     Dosage: 125 MG
     Route: 048
     Dates: start: 20200519
  8. CARBOPLATINE ACCORD 10 MG/ML, SOLUTION POUR PERFUSION [Suspect]
     Active Substance: CARBOPLATIN
     Indication: SMALL CELL LUNG CANCER
     Dosage: 950 MG
     Route: 041
     Dates: start: 20200519
  9. ULTIBRO BREEZHALER [Concomitant]
     Active Substance: GLYCOPYRRONIUM\INDACATEROL
  10. INNOHEP [Concomitant]
     Active Substance: TINZAPARIN SODIUM
  11. CORTANCYL 5 MG, COMPRIME [Concomitant]
     Active Substance: PREDNISONE
  12. CETIRIZINE ARROW 10 MG, COMPRIME PELLICULE SECABLE [Concomitant]

REACTIONS (1)
  - Neuropathy peripheral [Not Recovered/Not Resolved]

NARRATIVE: CASE EVENT DATE: 20200519
